FAERS Safety Report 17556255 (Version 1)
Quarter: 2020Q1

REPORT INFORMATION
  Report Type: Spontaneous
  Country: US (occurrence: US)
  Receive Date: 20200318
  Receipt Date: 20200318
  Transmission Date: 20200409
  Serious: No
  Sender: FDA-Public Use
  Company Number: US-THERAPEUTICSMD-2019TMD05250

PATIENT
  Sex: Female

DRUGS (1)
  1. IMVEXXY [Suspect]
     Active Substance: ESTRADIOL
     Dosage: UNK, 1X/DAY
     Dates: start: 20191204

REACTIONS (3)
  - Vulvovaginal dryness [Not Recovered/Not Resolved]
  - Product dose omission [Not Recovered/Not Resolved]
  - Feeling abnormal [Not Recovered/Not Resolved]

NARRATIVE: CASE EVENT DATE: 201912
